FAERS Safety Report 5413264-2 (Version None)
Quarter: 2007Q3

REPORT INFORMATION
  Report Type: 
  Country: None (occurrence: None)
  Receive Date: 20070717
  Receipt Date: 20070118
  Transmission Date: 20080115
  Serious: Yes (Other)
  Sender: FDA-Public Use
  Company Number: HQWYE868118JAN07

PATIENT
  Age: 20 Year
  Sex: Female
  Weight: 68.1 kg

DRUGS (4)
  1. ADVIL                   (IBUPROFEN, UNSPEC) [Suspect]
     Indication: PAIN
     Dosage: ^1 EVERY 6 HOURS AS NEEDED INTERMITTENTLY^
  2. ACETAMINOPHEN [Suspect]
     Indication: PYREXIA
     Dosage: 1000 MG EVERY 4 HOURS AS NEEDED,
     Dates: start: 20061224, end: 20070101
  3. AZITHROMYCIN [Concomitant]
  4. LEVOTHYROXINE SODIUM [Concomitant]

REACTIONS (1)
  - HEPATITIS [None]
